FAERS Safety Report 5478335-3 (Version None)
Quarter: 2007Q4

REPORT INFORMATION
  Report Type: 
  Country: None (occurrence: None)
  Receive Date: 20071005
  Receipt Date: 20070921
  Transmission Date: 20080405
  Serious: Yes (Other)
  Sender: FDA-Public Use
  Company Number: CA-GENENTECH-248174

PATIENT
  Sex: Male

DRUGS (2)
  1. OMALIZUMAB [Suspect]
     Indication: ASTHMA
     Dosage: UNK, Q2W
     Route: 065
     Dates: start: 20070501
  2. MEDICATION (UNK INGREDIENT) [Concomitant]
     Indication: ASTHMA

REACTIONS (3)
  - AGEUSIA [None]
  - ANOSMIA [None]
  - SINUS CONGESTION [None]
